FAERS Safety Report 10180400 (Version 2)
Quarter: 2014Q2

REPORT INFORMATION
  Report Type: Spontaneous
  Country: US (occurrence: US)
  Receive Date: 20140519
  Receipt Date: 20140519
  Transmission Date: 20141212
  Serious: Yes (Other)
  Sender: FDA-Public Use
  Company Number: US-AMGEN-USASP2013068584

PATIENT
  Sex: Female
  Weight: 99.77 kg

DRUGS (9)
  1. PROLIA [Suspect]
     Indication: OSTEOPOROSIS POSTMENOPAUSAL
     Dosage: 60 MG, ONE TIME DOSE
     Route: 058
     Dates: start: 20130821
  2. CALCIUM [Concomitant]
     Indication: OSTEOPOROSIS
     Dosage: 5 MG, QD
     Route: 048
     Dates: start: 20090819
  3. ENALAPRIL [Concomitant]
     Indication: HYPERTENSION
     Dosage: 5 MG, QD
     Route: 048
     Dates: start: 2004
  4. ENALAPRIL [Concomitant]
     Indication: RENAL FAILURE CHRONIC
  5. KLONOPIN [Concomitant]
     Indication: DEPRESSION
     Dosage: 1 MG, TID
     Route: 048
  6. PRILOSEC                           /00661201/ [Concomitant]
     Dosage: 20 MG, BID
     Route: 048
     Dates: start: 2008
  7. SEROQUEL [Concomitant]
     Indication: DEPRESSION
     Dosage: 200 MG, TID
     Route: 048
     Dates: start: 2011
  8. SIMVASTATIN [Concomitant]
     Indication: HYPERLIPIDAEMIA
     Dosage: 10 MG, UNK
     Dates: start: 2009
  9. CALCIUM CARBONATE [Concomitant]
     Dosage: 1000 MG, BID
     Route: 048

REACTIONS (3)
  - Hypocalcaemia [Recovered/Resolved]
  - Paraesthesia [Unknown]
  - Blood albumin abnormal [Unknown]
